FAERS Safety Report 11735306 (Version 1)
Quarter: 2015Q4

REPORT INFORMATION
  Report Type: Spontaneous
  Country: IL (occurrence: IL)
  Receive Date: 20151113
  Receipt Date: 20151113
  Transmission Date: 20160304
  Serious: Yes (Other)
  Sender: FDA-Public Use
  Company Number: IL-009507513-2012SP015058

PATIENT
  Age: 57 Year
  Sex: Female

DRUGS (15)
  1. REBETOL [Suspect]
     Active Substance: RIBAVIRIN
     Dosage: 0.2 MG, UNK,0.2 MG DAILY DOSE FOR 7-9 DAYS
     Route: 048
  2. REBETOL [Suspect]
     Active Substance: RIBAVIRIN
     Dosage: 100 MG, UNK, 1 00 MG DAILY DOSE FOR 28-30 DAYS
     Route: 048
  3. REBETOL [Suspect]
     Active Substance: RIBAVIRIN
     Dosage: 200 MG, UNK
     Route: 048
  4. PEGASYS [Concomitant]
     Active Substance: PEGINTERFERON ALFA-2A
  5. REBETOL [Suspect]
     Active Substance: RIBAVIRIN
     Dosage: 0.1 MG, UNK, 0.1 MG DAILY DOSE FOR 4-6 DAYS
     Route: 048
  6. REBETOL [Suspect]
     Active Substance: RIBAVIRIN
     Dosage: 1 MG, UNK, 1 MG DAILY DOSE FOR 13-15 DAYS
     Route: 048
  7. REBETOL [Suspect]
     Active Substance: RIBAVIRIN
     Dosage: 10 MG, UNK, 10 MG DAILY DOSE FOR 19-21 DAYS
     Route: 048
  8. REBETOL [Suspect]
     Active Substance: RIBAVIRIN
     Dosage: 20 MG, UNK, 20 MG DAILY DOSE FOR 22-24 DAYS
     Route: 048
  9. COPEGUS [Concomitant]
     Active Substance: RIBAVIRIN
  10. REBETOL [Suspect]
     Active Substance: RIBAVIRIN
     Indication: CHRONIC HEPATITIS C
     Dosage: 0.05 MG, UNK, 0.05 MG DAILY DOSE FOR 1-3 DAYS
     Route: 048
  11. REBETOL [Suspect]
     Active Substance: RIBAVIRIN
     Dosage: 0.4 MG, UNK, 0.4 MG DAILY DOSE FOR 10-12 DAYS
     Route: 048
  12. REBETOL [Suspect]
     Active Substance: RIBAVIRIN
     Dosage: 5 MG, UNK, 5 MG DAILY DOSE FOR 16-18 DAYS
     Route: 048
  13. REBETOL [Suspect]
     Active Substance: RIBAVIRIN
     Dosage: UNK
  14. REBETOL [Suspect]
     Active Substance: RIBAVIRIN
     Dosage: 50 MG, UNK, 50 MG DAILY DOSE FOR 25-27 DAYS
     Route: 048
  15. PEGINTRON [Concomitant]
     Active Substance: PEGINTERFERON ALFA-2B
     Indication: CHRONIC HEPATITIS C
     Dosage: UNK UNK, UNKNOWN
     Route: 065

REACTIONS (4)
  - Drug dispensing error [Unknown]
  - Febrile neutropenia [Unknown]
  - Rash maculo-papular [Unknown]
  - Pruritus [Unknown]
